FAERS Safety Report 5164472-X (Version None)
Quarter: 2006Q4

REPORT INFORMATION
  Report Type: 
  Country: None (occurrence: None)
  Receive Date: 20061205
  Receipt Date: 20061125
  Transmission Date: 20070319
  Serious: Yes (Other)
  Sender: FDA-Public Use
  Company Number: GB-ROCHE-472921

PATIENT
  Age: 55 Year
  Sex: Female
  Weight: 96.6 kg

DRUGS (1)
  1. XENICAL [Suspect]
     Indication: OBESITY
     Route: 048
     Dates: start: 20060927

REACTIONS (4)
  - DISCOMFORT [None]
  - DYSPEPSIA [None]
  - GASTRIC ULCER [None]
  - PAIN [None]
